FAERS Safety Report 15274921 (Version 1)
Quarter: 2018Q3

REPORT INFORMATION
  Report Type: Spontaneous
  Country: US (occurrence: US)
  Receive Date: 20180814
  Receipt Date: 20180814
  Transmission Date: 20181010
  Serious: No
  Sender: FDA-Public Use
  Company Number: US-SA-2018SA221908

PATIENT
  Age: 59 Year
  Sex: Female

DRUGS (1)
  1. APIDRA [Suspect]
     Active Substance: INSULIN GLULISINE
     Indication: DIABETES MELLITUS
     Dosage: 17 U, TID
     Dates: start: 20180707, end: 20180805

REACTIONS (3)
  - Neck pain [Recovered/Resolved]
  - Blood glucose abnormal [Recovered/Resolved]
  - Pain [Recovered/Resolved]
